FAERS Safety Report 9554664 (Version 2)
Quarter: 2015Q4

REPORT INFORMATION
  Report Type: Report from Study
  Country: US (occurrence: US)
  Receive Date: 20130925
  Receipt Date: 20151029
  Transmission Date: 20160305
  Serious: Yes (Death)
  Sender: FDA-Public Use
  Company Number: US-ROCHE-1281337

PATIENT
  Sex: Male

DRUGS (15)
  1. AVASTIN [Suspect]
     Active Substance: BEVACIZUMAB
     Indication: HEPATIC CANCER
  2. GRANISETRON [Concomitant]
     Active Substance: GRANISETRON
     Route: 065
  3. DEXAMETHASONE. [Concomitant]
     Active Substance: DEXAMETHASONE
     Route: 065
  4. CYANOCOBALAMIN. [Concomitant]
     Active Substance: CYANOCOBALAMIN
     Dosage: LEFT DELTOID
     Route: 030
  5. PROCRIT [Concomitant]
     Active Substance: ERYTHROPOIETIN
     Dosage: RIGHT ARM
     Route: 058
  6. CARBOPLATIN. [Concomitant]
     Active Substance: CARBOPLATIN
     Dosage: 500 ML NS
     Route: 065
  7. CARBOPLATIN. [Concomitant]
     Active Substance: CARBOPLATIN
     Dosage: 500 ML NS
     Route: 065
  8. ALIMTA [Concomitant]
     Active Substance: PEMETREXED DISODIUM
     Dosage: 100 ML NS
     Route: 065
  9. AVASTIN [Suspect]
     Active Substance: BEVACIZUMAB
     Indication: LUNG NEOPLASM MALIGNANT
     Dosage: 100 ML NS
     Route: 065
  10. ALIMTA [Concomitant]
     Active Substance: PEMETREXED DISODIUM
     Dosage: 100 ML NS
     Route: 065
  11. HEPARIN [Concomitant]
     Active Substance: HEPARIN SODIUM
     Route: 065
  12. NEULASTA [Concomitant]
     Active Substance: PEGFILGRASTIM
     Route: 065
  13. PEPCID [Concomitant]
     Active Substance: FAMOTIDINE
     Route: 065
  14. MAGNESIUM SULPHATE [Concomitant]
     Active Substance: MAGNESIUM SULFATE
     Dosage: 250 ML NS
     Route: 065
  15. FAMOTIDINE. [Concomitant]
     Active Substance: FAMOTIDINE
     Dosage: 50 ML NS
     Route: 065

REACTIONS (2)
  - Off label use [Unknown]
  - Death [Fatal]
